FAERS Safety Report 5443514-8 (Version None)
Quarter: 2007Q3

REPORT INFORMATION
  Report Type: 
  Country: None (occurrence: None)
  Receive Date: 20070905
  Receipt Date: 20070827
  Transmission Date: 20080115
  Serious: Yes (Hospitalization)
  Sender: FDA-Public Use
  Company Number: US-ELI_LILLY_AND_COMPANY-US200708003397

PATIENT
  Age: 62 Year
  Sex: Female

DRUGS (7)
  1. BYETTA [Suspect]
     Indication: DIABETES MELLITUS
     Dosage: 10 UG, UNKNOWN
     Route: 065
  2. GLUCOPHAGE [Concomitant]
     Dosage: 1000 MG, 2/D
  3. AVANDIA [Concomitant]
     Dosage: 4 MG, 2/D
  4. LIPITOR [Concomitant]
     Dosage: 40 MG, UNKNOWN
  5. TARKA [Concomitant]
     Dosage: UNK D/F, UNKNOWN
  6. OXAPROZIN [Concomitant]
     Dosage: 600 MG, UNKNOWN
  7. TRICOR [Concomitant]
     Dosage: UNK, UNKNOWN

REACTIONS (3)
  - BLOOD GLUCOSE INCREASED [None]
  - EAR INFECTION [None]
  - VERTIGO [None]
